FAERS Safety Report 11373419 (Version 1)
Quarter: 2015Q3

REPORT INFORMATION
  Report Type: Spontaneous
  Country: IT (occurrence: None)
  Receive Date: 20150811
  Receipt Date: 20150811
  Transmission Date: 20151125
  Serious: Yes (Other)
  Sender: FDA-Public Use
  Company Number: CO-ZN-IT-2015-031

PATIENT
  Age: 24 Year
  Sex: Female

DRUGS (2)
  1. RANITIDINE HYDROCHLORIDE (UNKNOWN) (RANITIDINE HYDROCHLORIDE) [Suspect]
     Active Substance: RANITIDINE HYDROCHLORIDE
     Dates: start: 20130119
  2. BUSCOPAN (HYOSCINE BUTYLBROMIDE) (HYOSCINE BUTYLBROMIDE) [Concomitant]
     Active Substance: BUTYLSCOPOLAMINE

REACTIONS (3)
  - Urticaria [None]
  - Pruritus generalised [None]
  - Angioedema [None]

NARRATIVE: CASE EVENT DATE: 20130119
